FAERS Safety Report 25108415 (Version 2)
Quarter: 2025Q2

REPORT INFORMATION
  Report Type: Report from Study
  Country: CA (occurrence: CA)
  Receive Date: 20250322
  Receipt Date: 20250416
  Transmission Date: 20250717
  Serious: Yes (Hospitalization)
  Sender: AMGEN
  Company Number: CA-AMGEN-CANSL2025053138

PATIENT
  Age: 69 Year
  Sex: Male

DRUGS (4)
  1. IMDELLTRA [Suspect]
     Active Substance: TARLATAMAB-DLLE
     Indication: Small cell lung cancer extensive stage
     Route: 065
     Dates: start: 20250113, end: 20250113
  2. IMDELLTRA [Suspect]
     Active Substance: TARLATAMAB-DLLE
     Route: 065
     Dates: start: 2025, end: 2025
  3. IMDELLTRA [Suspect]
     Active Substance: TARLATAMAB-DLLE
     Route: 065
     Dates: start: 2025, end: 2025
  4. IMDELLTRA [Suspect]
     Active Substance: TARLATAMAB-DLLE
     Route: 065
     Dates: start: 2025

REACTIONS (4)
  - Immune effector cell-associated neurotoxicity syndrome [Unknown]
  - Cytokine release syndrome [Unknown]
  - Pain [Unknown]
  - Cough [Unknown]

NARRATIVE: CASE EVENT DATE: 20250101
